FAERS Safety Report 9008520 (Version 1)
Quarter: 2013Q1

REPORT INFORMATION
  Report Type: Spontaneous
  Country: JP (occurrence: JP)
  Receive Date: 20130111
  Receipt Date: 20130111
  Transmission Date: 20140127
  Serious: Yes (Death, Other)
  Sender: FDA-Public Use
  Company Number: PHHY2013JP002011

PATIENT
  Age: 55 Year
  Sex: Male

DRUGS (5)
  1. CICLOSPORIN [Suspect]
     Indication: PROPHYLAXIS AGAINST GRAFT VERSUS HOST DISEASE
  2. CICLOSPORIN [Suspect]
     Indication: STEM CELL TRANSPLANT
  3. FLUDARABINE [Concomitant]
     Dosage: 25 MG/KG, QD X5 DAYS
  4. MELPHALAN [Concomitant]
     Dosage: 40 MG/KG, QD X2 DAYS
  5. IRRADIATION [Concomitant]
     Dosage: 2 GY X 6

REACTIONS (8)
  - Pseudomonal sepsis [Fatal]
  - Chronic graft versus host disease in intestine [Unknown]
  - Chronic graft versus host disease in skin [Unknown]
  - Chronic graft versus host disease in liver [Unknown]
  - Cytomegalovirus infection [Unknown]
  - Adenovirus infection [Unknown]
  - Cystitis haemorrhagic [Unknown]
  - Liver abscess [Unknown]
